FAERS Safety Report 10182357 (Version 3)
Quarter: 2014Q3

REPORT INFORMATION
  Report Type: Spontaneous
  Country: US (occurrence: US)
  Receive Date: 20140520
  Receipt Date: 20140708
  Transmission Date: 20150326
  Serious: Yes (Other)
  Sender: FDA-Public Use
  Company Number: US-PFIZER INC-2014135088

PATIENT
  Age: 58 Year
  Sex: Female
  Weight: 59.86 kg

DRUGS (5)
  1. WELLBUTRIN [Concomitant]
     Active Substance: BUPROPION HYDROCHLORIDE
     Dosage: 150 MG, DAILY
  2. PHENERGAN [Concomitant]
     Active Substance: PROMETHAZINE HYDROCHLORIDE
     Dosage: 12.5 MG, AS NEEDED
  3. CELEBREX [Suspect]
     Active Substance: CELECOXIB
     Indication: OSTEOARTHRITIS
     Dosage: 200 MG, 2X/DAY
  4. RELPAX [Suspect]
     Active Substance: ELETRIPTAN HYDROBROMIDE
     Indication: MIGRAINE
     Dosage: 30 MG, AS NEEDED
  5. CRESTOR [Concomitant]
     Active Substance: ROSUVASTATIN CALCIUM
     Dosage: 10 MG, DAILY

REACTIONS (1)
  - Systemic lupus erythematosus [Not Recovered/Not Resolved]

NARRATIVE: CASE EVENT DATE: 2011
